FAERS Safety Report 9099064 (Version 1)
Quarter: 2013Q1

REPORT INFORMATION
  Report Type: Spontaneous
  Country: US (occurrence: US)
  Receive Date: 20130213
  Receipt Date: 20130213
  Transmission Date: 20140127
  Serious: Yes (Other)
  Sender: FDA-Public Use
  Company Number: US-ELI_LILLY_AND_COMPANY-US201302001915

PATIENT
  Sex: Female

DRUGS (4)
  1. HUMALOG LISPRO [Suspect]
     Indication: TYPE 2 DIABETES MELLITUS
     Dosage: UNK, PRN
     Dates: start: 2007
  2. OMEPRAZOLE [Concomitant]
  3. THYROXINE [Concomitant]
  4. LANTUS [Concomitant]

REACTIONS (5)
  - Wound infection [Not Recovered/Not Resolved]
  - Laceration [Unknown]
  - Haemorrhage [Unknown]
  - Blood glucose increased [Not Recovered/Not Resolved]
  - Drug effect incomplete [Unknown]
